FAERS Safety Report 18864935 (Version 4)
Quarter: 2021Q2

REPORT INFORMATION
  Report Type: Spontaneous
  Country: US (occurrence: US)
  Receive Date: 20210209
  Receipt Date: 20210422
  Transmission Date: 20210717
  Serious: Yes (Other)
  Sender: FDA-Public Use
  Company Number: US-BAYER-2021-058441

PATIENT
  Age: 44 Year
  Sex: Female

DRUGS (2)
  1. MIRENA [Suspect]
     Active Substance: LEVONORGESTREL
     Indication: HEAVY MENSTRUAL BLEEDING
  2. MIRENA [Suspect]
     Active Substance: LEVONORGESTREL
     Indication: CONTRACEPTION
     Dosage: 20 ?G PER DAY CONTINUOUSLY
     Route: 015
     Dates: start: 202008

REACTIONS (3)
  - Pelvic pain [Recovering/Resolving]
  - Complication of device removal [None]
  - Embedded device [Recovering/Resolving]

NARRATIVE: CASE EVENT DATE: 202012
